FAERS Safety Report 7319800-3 (Version None)
Quarter: 2011Q1

REPORT INFORMATION
  Report Type: 
  Country: None (occurrence: None)
  Receive Date: 20110228
  Receipt Date: 20100928
  Transmission Date: 20110831
  Serious: Yes (Hospitalization)
  Sender: FDA-Public Use
  Company Number: A0884286A

PATIENT
  Age: 31 Year
  Sex: Female

DRUGS (4)
  1. LANTUS [Concomitant]
  2. SIMVASTATIN [Concomitant]
  3. LAMICTAL [Suspect]
     Dosage: 100MG UNKNOWN
     Route: 048
     Dates: end: 20090425
  4. LEXAPRO [Concomitant]

REACTIONS (1)
  - STEVENS-JOHNSON SYNDROME [None]
